FAERS Safety Report 9887604 (Version 1)
Quarter: 2014Q1

REPORT INFORMATION
  Report Type: Spontaneous
  Country: US (occurrence: None)
  Receive Date: 20140206
  Receipt Date: 20140206
  Transmission Date: 20141002
  Serious: Yes (Death)
  Sender: FDA-Public Use
  Company Number: AUR-APL-2014-01042

PATIENT
  Age: 41 Year
  Sex: Male

DRUGS (6)
  1. CITALOPRAM [Suspect]
     Indication: PRODUCT USED FOR UNKNOWN INDICATION
  2. HEROIN (DIAMORPHINE) (DIAMORPHINE) [Suspect]
     Indication: PRODUCT USED FOR UNKNOWN INDICATION
     Route: 051
  3. COCAINE [Suspect]
     Indication: PRODUCT USED FOR UNKNOWN INDICATION
  4. PROMETHAZINE (PROMETHAZINE) [Suspect]
     Indication: PRODUCT USED FOR UNKNOWN INDICATION
  5. DEXTROMETHORPHAN (DEXTROMETHORPHAN) [Suspect]
     Indication: PRODUCT USED FOR UNKNOWN INDICATION
  6. QUININE [Suspect]
     Indication: PRODUCT USED FOR UNKNOWN INDICATION

REACTIONS (1)
  - Drug abuse [None]
